FAERS Safety Report 6617388-3 (Version None)
Quarter: 2010Q1

REPORT INFORMATION
  Report Type: 
  Country: None (occurrence: None)
  Receive Date: 20100307
  Receipt Date: 20100217
  Transmission Date: 20100710
  Serious: Yes (Other)
  Sender: FDA-Public Use
  Company Number: US-BAYER-200943722NA

PATIENT
  Age: 66 Year
  Sex: Female
  Weight: 66 kg

DRUGS (26)
  1. MAGNEVIST [Suspect]
     Indication: NUCLEAR MAGNETIC RESONANCE IMAGING
     Dates: start: 20020711, end: 20020711
  2. MAGNEVIST [Suspect]
     Dates: start: 20021115, end: 20021115
  3. MAGNEVIST [Suspect]
     Dates: start: 20060102, end: 20060102
  4. OMNISCAN [Suspect]
     Indication: NUCLEAR MAGNETIC RESONANCE IMAGING
     Dates: start: 20060406, end: 20060406
  5. OPTIMARK [Suspect]
     Indication: NUCLEAR MAGNETIC RESONANCE IMAGING
  6. MULTIHANCE [Suspect]
     Indication: NUCLEAR MAGNETIC RESONANCE IMAGING
  7. PROHANCE [Suspect]
     Indication: NUCLEAR MAGNETIC RESONANCE IMAGING
  8. UNSPECIFIED GADOLINIUM BASED CONTRAST AGENT [Suspect]
     Indication: NUCLEAR MAGNETIC RESONANCE IMAGING
     Dates: start: 20021105, end: 20021105
  9. UNSPECIFIED GADOLINIUM BASED CONTRAST AGENT [Suspect]
     Dates: start: 20040316, end: 20040316
  10. UNSPECIFIED GADOLINIUM BASED CONTRAST AGENT [Suspect]
     Dates: start: 20060406, end: 20060406
  11. RENAGEL [Concomitant]
  12. CALCITRIOL [Concomitant]
  13. EPOGEN [Concomitant]
  14. PHOSLO [Concomitant]
  15. DOVONEX [Concomitant]
  16. TRETINOIN CREAM [Concomitant]
  17. INFED [Concomitant]
  18. PRILOSEC [Concomitant]
  19. IRON [Concomitant]
     Route: 042
  20. ARANESP [Concomitant]
  21. COUMADIN [Concomitant]
  22. ZEMPLAR [Concomitant]
  23. FERRELECIT [Concomitant]
  24. VENOFER [Concomitant]
  25. SENSIPAR [Concomitant]
  26. TOPROL-XL [Concomitant]

REACTIONS (21)
  - ASTHENIA [None]
  - FATIGUE [None]
  - GAIT DISTURBANCE [None]
  - HYPERKERATOSIS [None]
  - HYPOAESTHESIA [None]
  - JOINT CONTRACTURE [None]
  - JOINT RANGE OF MOTION DECREASED [None]
  - MUSCULOSKELETAL DISCOMFORT [None]
  - MUSCULOSKELETAL PAIN [None]
  - MUSCULOSKELETAL STIFFNESS [None]
  - NEPHROGENIC SYSTEMIC FIBROSIS [None]
  - PAIN [None]
  - PAIN IN EXTREMITY [None]
  - PARAESTHESIA [None]
  - PEAU D'ORANGE [None]
  - PINGUECULA [None]
  - PRURITUS [None]
  - SKIN HYPERPIGMENTATION [None]
  - SKIN HYPERTROPHY [None]
  - SKIN INDURATION [None]
  - SKIN TIGHTNESS [None]
